FAERS Safety Report 5353469-2 (Version None)
Quarter: 2007Q2

REPORT INFORMATION
  Report Type: 
  Country: None (occurrence: None)
  Receive Date: 20070612
  Receipt Date: 20070604
  Transmission Date: 20071010
  Serious: Yes (Other)
  Sender: FDA-Public Use
  Company Number: PHNU2007DE00955

PATIENT
  Age: 57 Year
  Sex: Female
  Weight: 80 kg

DRUGS (2)
  1. AREDIA [Suspect]
     Indication: METASTASES TO BONE
     Dosage: 1 DF, ONCE/SINGLE
     Route: 042
     Dates: start: 20070212, end: 20070212
  2. ZOMETA [Suspect]
     Indication: METASTASES TO BONE
     Dosage: UNK, ONCE/SINGLE
     Route: 042
     Dates: start: 20050626, end: 20050626

REACTIONS (2)
  - DEEP VEIN THROMBOSIS [None]
  - MUSCLE SPASMS [None]
